FAERS Safety Report 14356603 (Version 1)
Quarter: 2018Q1

REPORT INFORMATION
  Report Type: Spontaneous
  Country: US (occurrence: US)
  Receive Date: 20180105
  Receipt Date: 20180105
  Transmission Date: 20180509
  Serious: Yes (Other)
  Sender: FDA-Public Use
  Company Number: US-TAKEDA-2018TUS000248

PATIENT
  Age: 47 Year
  Sex: Female
  Weight: 74.83 kg

DRUGS (2)
  1. DEXILANT [Suspect]
     Active Substance: DEXLANSOPRAZOLE
     Indication: GASTROOESOPHAGEAL REFLUX DISEASE
     Dosage: 60 MG, QD
     Route: 048
     Dates: end: 201710
  2. AMITRIPTYLINE [Concomitant]
     Active Substance: AMITRIPTYLINE
     Indication: GASTROOESOPHAGEAL REFLUX DISEASE
     Dosage: 5 MG, UNK
     Route: 048
     Dates: end: 201710

REACTIONS (5)
  - Arthralgia [Recovering/Resolving]
  - Hepatic failure [Unknown]
  - Weight increased [Unknown]
  - Vitamin D decreased [Unknown]
  - Blood magnesium decreased [Unknown]

NARRATIVE: CASE EVENT DATE: 201710
